FAERS Safety Report 4601648-1 (Version None)
Quarter: 2005Q1

REPORT INFORMATION
  Report Type: 
  Country: None (occurrence: None)
  Receive Date: 20050308
  Receipt Date: 20050304
  Transmission Date: 20050727
  Serious: Yes (Other)
  Sender: FDA-Public Use
  Company Number: DE-GLAXOSMITHKLINE-D0046061A

PATIENT
  Age: 37 Year
  Sex: Female

DRUGS (2)
  1. QUILONUM RETARD [Suspect]
     Indication: BIPOLAR I DISORDER
     Dosage: 2TAB PER DAY
     Route: 048
     Dates: start: 20030625
  2. REMERGIL [Suspect]
     Dosage: 30MG PER DAY
     Route: 065
     Dates: start: 20030625, end: 20030709

REACTIONS (2)
  - DRUG INTERACTION [None]
  - OEDEMA PERIPHERAL [None]
